FAERS Safety Report 6398875-2 (Version None)
Quarter: 2009Q4

REPORT INFORMATION
  Report Type: 
  Country: None (occurrence: None)
  Receive Date: 20091007
  Receipt Date: 20090930
  Transmission Date: 20100525
  Serious: Yes (Other)
  Sender: FDA-Public Use
  Company Number: 366999

PATIENT
  Age: 55 Year
  Sex: Female

DRUGS (11)
  1. VINCRISTINE [Suspect]
     Indication: DIFFUSE LARGE B-CELL LYMPHOMA REFRACTORY
     Dosage: 1.4 MG/M2, INTRAVENOUS
     Route: 042
  2. (CALCIUM FOLINATE) [Concomitant]
  3. EPIRUBICIN [Concomitant]
  4. METHOTREXATE [Concomitant]
  5. CYTARABINE [Concomitant]
  6. ETOPOSIDE [Concomitant]
  7. MITOXANTRONE HYDROCHLORIDE [Concomitant]
  8. DEXAMETHASONE 0.5MG TAB [Concomitant]
  9. IDARUBICIN HCL [Concomitant]
  10. (ASPARAGINASE) [Concomitant]
  11. IFOSFAMIDE [Concomitant]

REACTIONS (6)
  - B-CELL LYMPHOMA RECURRENT [None]
  - BACTERIAL SEPSIS [None]
  - METASTASES TO BONE MARROW [None]
  - METASTASES TO LYMPH NODES [None]
  - NEUROPATHY PERIPHERAL [None]
  - PROCEDURAL COMPLICATION [None]
